FAERS Safety Report 20723091 (Version 2)
Quarter: 2022Q2

REPORT INFORMATION
  Report Type: Spontaneous
  Country: US (occurrence: US)
  Receive Date: 20220419
  Receipt Date: 20220608
  Transmission Date: 20220720
  Serious: Yes (Other)
  Sender: FDA-Public Use
  Company Number: US-BEH-2022144122

PATIENT
  Sex: Male

DRUGS (8)
  1. IDELVION [Suspect]
     Active Substance: COAGULATION FACTOR IX RECOMBINANT HUMAN
     Indication: Factor IX deficiency
     Dosage: 3034 INTERNATIONAL UNIT (1032U AND 2002U), QW
     Route: 042
     Dates: start: 202203
  2. IDELVION [Suspect]
     Active Substance: COAGULATION FACTOR IX RECOMBINANT HUMAN
     Indication: Factor IX deficiency
     Dosage: 3034 INTERNATIONAL UNIT (1032U AND 2002U), QW
     Route: 042
     Dates: start: 202203
  3. IDELVION [Suspect]
     Active Substance: COAGULATION FACTOR IX RECOMBINANT HUMAN
     Dosage: 3034 INTERNATIONAL UNIT (1032U AND 2002U), EVERY OTHER DAY, PRN
     Route: 042
     Dates: start: 202203
  4. IDELVION [Suspect]
     Active Substance: COAGULATION FACTOR IX RECOMBINANT HUMAN
     Dosage: 3034 INTERNATIONAL UNIT (1032U AND 2002U), EVERY OTHER DAY, PRN
     Route: 042
     Dates: start: 202203
  5. IDELVION [Suspect]
     Active Substance: COAGULATION FACTOR IX RECOMBINANT HUMAN
     Dosage: 3054 INTERNATIONAL UNIT (2748-3359), QW
     Route: 042
     Dates: start: 202203
  6. IDELVION [Suspect]
     Active Substance: COAGULATION FACTOR IX RECOMBINANT HUMAN
     Dosage: 3054 INTERNATIONAL UNIT (2748-3359), QW
     Route: 042
     Dates: start: 202203
  7. IDELVION [Suspect]
     Active Substance: COAGULATION FACTOR IX RECOMBINANT HUMAN
     Dosage: 3054 INTERNATIONAL UNIT EVERY OTHER DAY, PRN
     Route: 042
     Dates: start: 202203
  8. IDELVION [Suspect]
     Active Substance: COAGULATION FACTOR IX RECOMBINANT HUMAN
     Dosage: 3054 INTERNATIONAL UNIT EVERY OTHER DAY, PRN
     Route: 042
     Dates: start: 202203

REACTIONS (2)
  - Haemarthrosis [Unknown]
  - Poor venous access [Unknown]
